FAERS Safety Report 7565593-4 (Version None)
Quarter: 2011Q2

REPORT INFORMATION
  Report Type: 
  Country: None (occurrence: None)
  Receive Date: 20110615
  Receipt Date: 20110606
  Transmission Date: 20111010
  Serious: Yes (Hospitalization)
  Sender: FDA-Public Use
  Company Number: 2011111161

PATIENT
  Age: 74 Year
  Sex: Female

DRUGS (11)
  1. DALTEPARIN SODIUM [Suspect]
     Indication: LUNG NEOPLASM MALIGNANT
     Dates: start: 20110311, end: 20110519
  2. MORPHINE SULFATE [Concomitant]
  3. ALBUTEROL SULFATE [Concomitant]
  4. SERETIDE (FLUTICASONE PROPIONATE, SALMETEROL XINAFOATE) [Concomitant]
  5. QUININE SULFATE [Concomitant]
  6. SPIRIVA [Concomitant]
  7. OMEPRAZOLE [Concomitant]
  8. GEMCITABINE [Concomitant]
  9. CARBOPLATIN [Concomitant]
  10. THEOPHYLLINE [Concomitant]
  11. URSODIOL [Concomitant]

REACTIONS (2)
  - OSTEOPOROSIS [None]
  - BACK PAIN [None]
